FAERS Safety Report 23510025 (Version 6)
Quarter: 2025Q2

REPORT INFORMATION
  Report Type: Spontaneous
  Country: US (occurrence: US)
  Receive Date: 20240211
  Receipt Date: 20250521
  Transmission Date: 20250717
  Serious: Yes (Other)
  Sender: SANOFI AVENTIS
  Company Number: US-SA-SAC20240206000817

PATIENT
  Age: 63 Year
  Sex: Male
  Weight: 84 kg

DRUGS (4)
  1. CAPRELSA [Suspect]
     Active Substance: VANDETANIB
     Indication: Thyroid cancer
     Dosage: 300 MG, QD
     Route: 048
     Dates: start: 20231220
  2. CAPRELSA [Suspect]
     Active Substance: VANDETANIB
     Dosage: 200 MG, QD
     Route: 048
  3. LEXAPRO [Concomitant]
     Active Substance: ESCITALOPRAM OXALATE
  4. CALCIUM [Concomitant]
     Active Substance: CALCIUM

REACTIONS (22)
  - Hepatic cancer [Unknown]
  - Hypothyroidism [Unknown]
  - Skin exfoliation [Unknown]
  - Sunburn [Unknown]
  - Immune system disorder [Not Recovered/Not Resolved]
  - Eye infection [Unknown]
  - Localised infection [Recovered/Resolved]
  - Glossodynia [Recovered/Resolved]
  - Oropharyngeal pain [Unknown]
  - Skin discolouration [Unknown]
  - Blister [Unknown]
  - Skin ulcer haemorrhage [Unknown]
  - Skin fissures [Unknown]
  - Tongue disorder [Unknown]
  - Oropharyngeal discomfort [Unknown]
  - Impaired work ability [Unknown]
  - Affect lability [Unknown]
  - Pain of skin [Unknown]
  - Stomatitis [Unknown]
  - Dry skin [Unknown]
  - Diarrhoea [Unknown]
  - Rash [Recovered/Resolved]

NARRATIVE: CASE EVENT DATE: 20240701
